FAERS Safety Report 4548492-1 (Version None)
Quarter: 2005Q1

REPORT INFORMATION
  Report Type: 
  Country: None (occurrence: None)
  Receive Date: 20050110
  Receipt Date: 20050107
  Transmission Date: 20050727
  Serious: Yes (Other)
  Sender: FDA-Public Use
  Company Number: US-GLAXOSMITHKLINE-A0539841A

PATIENT
  Age: 42 Year
  Sex: Female

DRUGS (2)
  1. WELLBUTRIN [Suspect]
     Indication: ILL-DEFINED DISORDER
     Dosage: 150MG PER DAY
     Route: 048
     Dates: start: 20050102
  2. NO CONCURRENT MEDICATION [Concomitant]

REACTIONS (2)
  - BLOOD URINE PRESENT [None]
  - VAGINAL HAEMORRHAGE [None]
